FAERS Safety Report 4436740-8 (Version None)
Quarter: 2004Q3

REPORT INFORMATION
  Report Type: 
  Country: None (occurrence: None)
  Receive Date: 20040830
  Receipt Date: 20030709
  Transmission Date: 20050211
  Serious: Yes (Hospitalization)
  Sender: FDA-Public Use
  Company Number: 200316297US

PATIENT
  Sex: Female

DRUGS (3)
  1. ARAVA [Suspect]
     Indication: RHEUMATOID ARTHRITIS
     Dates: start: 20010501, end: 20030702
  2. ENBREL [Concomitant]
     Dosage: DOSE: UNK
     Dates: start: 20030101, end: 20030701
  3. PROZAC [Concomitant]
     Dosage: DOSE: UNK

REACTIONS (2)
  - ACUTE MYELOID LEUKAEMIA [None]
  - WHITE BLOOD CELL COUNT DECREASED [None]
